FAERS Safety Report 23551171 (Version 1)
Quarter: 2024Q1

REPORT INFORMATION
  Report Type: Spontaneous
  Country: CN (occurrence: CN)
  Receive Date: 20240222
  Receipt Date: 20240222
  Transmission Date: 20240410
  Serious: Yes (Other)
  Sender: FDA-Public Use
  Company Number: CN-SHANGHAI JUNSHI BIOSCIENCES CO., LTD.-CN2024009345

PATIENT

DRUGS (8)
  1. TORIPALIMAB [Suspect]
     Active Substance: TORIPALIMAB
     Indication: Undifferentiated nasopharyngeal carcinoma
     Dosage: 240 MG
     Route: 041
     Dates: start: 20240130, end: 20240130
  2. TORIPALIMAB [Suspect]
     Active Substance: TORIPALIMAB
     Indication: Head and neck cancer
  3. GEMCITABINE HYDROCHLORIDE [Suspect]
     Active Substance: GEMCITABINE HYDROCHLORIDE
     Indication: Undifferentiated nasopharyngeal carcinoma
     Dosage: 0.8 G
     Route: 041
     Dates: start: 20240128, end: 20240128
  4. GEMCITABINE HYDROCHLORIDE [Suspect]
     Active Substance: GEMCITABINE HYDROCHLORIDE
     Indication: Head and neck cancer
  5. CAPECITABINE [Suspect]
     Active Substance: CAPECITABINE
     Indication: Undifferentiated nasopharyngeal carcinoma
     Dosage: 1 G, BID
     Route: 048
     Dates: start: 20240128, end: 20240204
  6. CAPECITABINE [Suspect]
     Active Substance: CAPECITABINE
     Indication: Head and neck cancer
  7. SODIUM CHLORIDE [Concomitant]
     Active Substance: SODIUM CHLORIDE
     Indication: Medication dilution
     Dosage: 100 ML
     Route: 041
     Dates: start: 20240128, end: 20240128
  8. SODIUM CHLORIDE [Concomitant]
     Active Substance: SODIUM CHLORIDE
     Dosage: 100 ML
     Route: 041
     Dates: start: 20240130, end: 20240130

REACTIONS (3)
  - White blood cell count decreased [Unknown]
  - Neutrophil count decreased [Unknown]
  - Off label use [Unknown]

NARRATIVE: CASE EVENT DATE: 20240130
